FAERS Safety Report 7995993-X (Version None)
Quarter: 2011Q4

REPORT INFORMATION
  Report Type: 
  Country: None (occurrence: None)
  Receive Date: 20111220
  Receipt Date: 20111207
  Transmission Date: 20120403
  Serious: Yes (Hospitalization, Other)
  Sender: FDA-Public Use
  Company Number: PHHY2011JP28684

PATIENT
  Age: 56 Year
  Sex: Female

DRUGS (11)
  1. AFINITOR [Suspect]
     Indication: SARCOMA
     Dosage: 10 MG, DAILY
     Route: 048
     Dates: start: 20110107, end: 20110222
  2. SUNITINIB MALATE [Concomitant]
     Dosage: 37.5 MG, UNK
     Route: 048
  3. ASTOMIN [Concomitant]
     Dosage: 30 MG
     Route: 048
     Dates: start: 20101022, end: 20110323
  4. URSO 250 [Concomitant]
     Dosage: 300 MG, UNK
     Route: 048
     Dates: start: 20110302, end: 20110301
  5. SUNITINIB MALATE [Concomitant]
     Dosage: 50 MG, UNK
     Route: 048
     Dates: start: 20100722, end: 20101216
  6. ASTOMIN [Concomitant]
     Dosage: 60 MG, UNK
     Route: 048
  7. CONIEL [Concomitant]
     Dosage: 4 MG
     Route: 048
     Dates: start: 20101210, end: 20110221
  8. METABANYL [Concomitant]
     Dosage: 6 MG, UNK
     Route: 048
     Dates: start: 20110222
  9. MUCODYNE [Concomitant]
     Dosage: 1500 MG, UNK
     Route: 048
     Dates: start: 20110304, end: 20110323
  10. SUNITINIB MALATE [Concomitant]
     Dosage: 25 MG, UNK
  11. CODEINE PHOSPHATE [Concomitant]
     Dosage: 60 MG
     Route: 048
     Dates: start: 20110131, end: 20110221

REACTIONS (4)
  - NEOPLASM MALIGNANT [None]
  - BLOOD LACTATE DEHYDROGENASE INCREASED [None]
  - NEOPLASM PROGRESSION [None]
  - PNEUMONIA [None]
